FAERS Safety Report 7823730-8 (Version None)
Quarter: 2011Q4

REPORT INFORMATION
  Report Type: 
  Country: None (occurrence: None)
  Receive Date: 20111019
  Receipt Date: 20111013
  Transmission Date: 20120403
  Serious: No
  Sender: FDA-Public Use
  Company Number: US-PFIZER INC-2011245675

PATIENT
  Sex: Male

DRUGS (2)
  1. SUTENT [Suspect]
     Indication: RENAL CANCER
     Dosage: 50 MG, 1X/DAY
     Route: 048
     Dates: start: 20110525
  2. ATENOLOL [Concomitant]
     Indication: HYPERTENSION
     Dosage: 50 MG, UNK

REACTIONS (9)
  - HAIR COLOUR CHANGES [None]
  - BACK PAIN [None]
  - MYALGIA [None]
  - ABDOMINAL PAIN [None]
  - ARTHRALGIA [None]
  - AGEUSIA [None]
  - NAUSEA [None]
  - DECREASED APPETITE [None]
  - DRY SKIN [None]
